FAERS Safety Report 9142378 (Version 2)
Quarter: 2013Q1

REPORT INFORMATION
  Report Type: Spontaneous
  Country: DE (occurrence: DE)
  Receive Date: 20130306
  Receipt Date: 20130329
  Transmission Date: 20140127
  Serious: Yes (Hospitalization)
  Sender: FDA-Public Use
  Company Number: DE-AMGEN-DEUSP2013013774

PATIENT
  Age: 34 Year
  Sex: Female
  Weight: 58 kg

DRUGS (4)
  1. NEULASTA [Suspect]
     Indication: PRODUCT USED FOR UNKNOWN INDICATION
     Dosage: 6 MG, Q2WK
     Route: 058
     Dates: start: 20121207, end: 20130208
  2. EPIRUBICIN [Concomitant]
     Indication: BREAST CANCER
     Dosage: 150 MG/M2, Q3WK
     Route: 042
     Dates: start: 20121206
  3. CYCLOPHOSPHAMID [Concomitant]
     Indication: BREAST CANCER
     Dosage: 1000 MG/M2, Q3WK
     Route: 042
     Dates: start: 20121206
  4. TAXOTERE [Concomitant]
     Indication: BREAST CANCER
     Dosage: 75 MG/M2, Q2WK
     Route: 042
     Dates: start: 20130207

REACTIONS (1)
  - Leukocytosis [Recovered/Resolved]
